FAERS Safety Report 19479298 (Version 1)
Quarter: 2021Q3

REPORT INFORMATION
  Report Type: Spontaneous
  Country: IT (occurrence: IT)
  Receive Date: 20210701
  Receipt Date: 20210701
  Transmission Date: 20211014
  Serious: Yes (Other)
  Sender: FDA-Public Use
  Company Number: IT-SAMSUNG BIOEPIS-SB-2021-11942

PATIENT
  Age: 56 Year
  Sex: Female

DRUGS (1)
  1. IMRALDI [Suspect]
     Active Substance: ADALIMUMAB
     Indication: CROHN^S DISEASE
     Dosage: UNKNOWN
     Route: 065
     Dates: start: 20210420

REACTIONS (8)
  - Breast enlargement [Unknown]
  - Hair disorder [Not Recovered/Not Resolved]
  - Trichorrhexis [Unknown]
  - Treatment noncompliance [Unknown]
  - Discomfort [Unknown]
  - Depression [Unknown]
  - Migraine [Unknown]
  - Alopecia [Unknown]

NARRATIVE: CASE EVENT DATE: 20210426
